FAERS Safety Report 8348885-0 (Version None)
Quarter: 2012Q2

REPORT INFORMATION
  Report Type: 
  Country: None (occurrence: None)
  Receive Date: 20120508
  Receipt Date: 20120417
  Transmission Date: 20120825
  Serious: Yes (Death)
  Sender: FDA-Public Use
  Company Number: 2012-189

PATIENT
  Age: 46 Year
  Sex: Female

DRUGS (1)
  1. FAZACLO ODT [Suspect]
     Dosage: 275-450 MG, QD, ORAL
     Route: 048
     Dates: start: 20080204, end: 20120404

REACTIONS (1)
  - DEATH [None]
